FAERS Safety Report 19756177 (Version 1)
Quarter: 2021Q3

REPORT INFORMATION
  Report Type: Spontaneous
  Country: US (occurrence: US)
  Receive Date: 20210827
  Receipt Date: 20210827
  Transmission Date: 20211014
  Serious: Yes (Other)
  Sender: FDA-Public Use
  Company Number: US-ORGANON-O2108USA001540

PATIENT
  Sex: Male

DRUGS (5)
  1. BUSPIRONE [Suspect]
     Active Substance: BUSPIRONE HYDROCHLORIDE
     Indication: PROPHYLAXIS
     Dosage: UNK
     Dates: start: 20130214, end: 20140519
  2. REMERON [Suspect]
     Active Substance: MIRTAZAPINE
     Dosage: UNK
     Dates: start: 20130214, end: 20140519
  3. PAXIL [Suspect]
     Active Substance: PAROXETINE HYDROCHLORIDE
     Dosage: UNK
  4. EFFEXOR [Suspect]
     Active Substance: VENLAFAXINE HYDROCHLORIDE
     Dosage: UNK
  5. VISTARIL [Suspect]
     Active Substance: HYDROXYZINE PAMOATE
     Dosage: UNK
     Dates: start: 20130214, end: 20140519

REACTIONS (19)
  - Depression [Unknown]
  - Leukopenia [Unknown]
  - Pain [Unknown]
  - Illness [Unknown]
  - Fatigue [Unknown]
  - Product prescribing error [Unknown]
  - Suicidal ideation [Unknown]
  - Sleep deficit [Unknown]
  - Anxiety [Unknown]
  - Neutrophil count decreased [Unknown]
  - White blood cell count decreased [Unknown]
  - Emotional distress [Not Recovered/Not Resolved]
  - Frustration tolerance decreased [Unknown]
  - Sense of oppression [Unknown]
  - Mental impairment [Unknown]
  - Thrombosis [Unknown]
  - Urinary tract infection [Unknown]
  - Panic disorder [Unknown]
  - Bone marrow disorder [Unknown]
